FAERS Safety Report 7627006-3 (Version None)
Quarter: 2011Q3

REPORT INFORMATION
  Report Type: 
  Country: None (occurrence: None)
  Receive Date: 20110721
  Receipt Date: 20110714
  Transmission Date: 20111222
  Serious: Yes (Hospitalization, Other)
  Sender: FDA-Public Use
  Company Number: US-MERCK-0708USA05623

PATIENT
  Age: 57 Year
  Sex: Female
  Weight: 59 kg

DRUGS (5)
  1. ULTRACET [Concomitant]
     Route: 065
  2. ACIPHEX [Concomitant]
     Route: 065
  3. SYNTHROID [Concomitant]
     Indication: HYPOTHYROIDISM
     Route: 065
     Dates: start: 19900101
  4. FOSAMAX [Suspect]
     Indication: OSTEOPENIA
     Route: 048
     Dates: start: 20031112
  5. VIVELLE [Concomitant]
     Indication: HORMONE REPLACEMENT THERAPY
     Route: 065
     Dates: start: 19930101, end: 20060515

REACTIONS (11)
  - ABSCESS ORAL [None]
  - ALVEOLAR OSTEITIS [None]
  - OSTEONECROSIS OF JAW [None]
  - TOOTH INFECTION [None]
  - IMPAIRED HEALING [None]
  - FRACTURE [None]
  - ORAL INFECTION [None]
  - TOOTH DISORDER [None]
  - SEASONAL ALLERGY [None]
  - JOINT DISLOCATION [None]
  - DRUG INEFFECTIVE [None]
